FAERS Safety Report 6565554-8 (Version None)
Quarter: 2010Q1

REPORT INFORMATION
  Report Type: 
  Country: None (occurrence: None)
  Receive Date: 20100201
  Receipt Date: 20100120
  Transmission Date: 20100710
  Serious: Yes (Other)
  Sender: FDA-Public Use
  Company Number: US-JNJFOC-20100111418

PATIENT
  Age: 58 Year
  Sex: Female

DRUGS (3)
  1. EXTRA STRENGTH TYLENOL [Suspect]
     Route: 048
  2. EXTRA STRENGTH TYLENOL [Suspect]
     Indication: MIGRAINE
     Dosage: 1000 MG AS NEEDED (2-4 TIMES WEEKLY)
     Route: 048
  3. IMITREX [Concomitant]
     Indication: MIGRAINE
     Dosage: 30 MG (ONE THIRD OF A 100 MG TABLET) AS NEEDED

REACTIONS (1)
  - DEPENDENCE [None]
